FAERS Safety Report 8232851-X (Version None)
Quarter: 2012Q1

REPORT INFORMATION
  Report Type: 
  Country: None (occurrence: None)
  Receive Date: 20120324
  Receipt Date: 20120314
  Transmission Date: 20120608
  Serious: Yes (Other)
  Sender: FDA-Public Use
  Company Number: US-ASTRAZENECA-2012SE17036

PATIENT
  Age: 58 Year
  Sex: Female

DRUGS (2)
  1. SEROQUEL [Suspect]
     Indication: PSYCHOMOTOR HYPERACTIVITY
     Route: 048
  2. SEROQUEL [Suspect]
     Indication: AGITATION
     Route: 048

REACTIONS (11)
  - HAEMORRHAGE [None]
  - AUTOIMMUNE THYROIDITIS [None]
  - OFF LABEL USE [None]
  - ARTHROPATHY [None]
  - LYME DISEASE [None]
  - VITAMIN D DECREASED [None]
  - STRESS [None]
  - SOMATIC DELUSION [None]
  - BACK DISORDER [None]
  - THERAPEUTIC RESPONSE UNEXPECTED [None]
  - PAIN [None]
